FAERS Safety Report 6034994-8 (Version None)
Quarter: 2009Q1

REPORT INFORMATION
  Report Type: 
  Country: None (occurrence: None)
  Receive Date: 20090109
  Receipt Date: 20090109
  Transmission Date: 20090719
  Serious: No
  Sender: FDA-Public Use
  Company Number: None

PATIENT
  Age: 40 Year
  Sex: Female
  Weight: 72 kg

DRUGS (2)
  1. VERSED [Suspect]
     Dosage: 5 MG IV BOLUS
     Route: 040
     Dates: start: 20090107
  2. MORPHINE [Suspect]
     Dosage: 5 MG IV BOLUS
     Route: 040
     Dates: start: 20090107

REACTIONS (2)
  - INJECTION SITE ERYTHEMA [None]
  - URTICARIA [None]
